FAERS Safety Report 4818670-2 (Version None)
Quarter: 2005Q4

REPORT INFORMATION
  Report Type: 
  Country: None (occurrence: None)
  Receive Date: 20051102
  Receipt Date: 20050722
  Transmission Date: 20060501
  Serious: Yes (Hospitalization, Disabling)
  Sender: FDA-Public Use
  Company Number: US-MERCK-0507USA03830

PATIENT
  Age: 52 Year
  Sex: Female
  Weight: 51 kg

DRUGS (11)
  1. VIOXX [Suspect]
     Indication: ARTHRALGIA
     Route: 048
     Dates: start: 20001027, end: 20010201
  2. EFFEXOR [Concomitant]
     Route: 065
  3. HYDROCODONE BITARTRATE + ACETAMINOPHEN [Concomitant]
     Route: 065
  4. SKELAXIN [Concomitant]
     Route: 065
  5. ULTRAM [Concomitant]
     Route: 065
  6. ATENOLOL [Concomitant]
     Route: 065
  7. CAPTOPRIL [Concomitant]
     Route: 065
  8. FUROSEMIDE [Concomitant]
     Route: 065
  9. KLOR-CON [Concomitant]
     Route: 065
  10. PREMPRO [Concomitant]
     Route: 065
  11. WELLBUTRIN [Concomitant]
     Route: 065

REACTIONS (14)
  - ANGINA PECTORIS [None]
  - ANXIETY [None]
  - ARRHYTHMIA [None]
  - BACTERIAL INFECTION [None]
  - BLOOD CHOLESTEROL INCREASED [None]
  - CARDIAC FAILURE CONGESTIVE [None]
  - CHEST DISCOMFORT [None]
  - CHRONIC FATIGUE SYNDROME [None]
  - CHRONIC OBSTRUCTIVE PULMONARY DISEASE [None]
  - CONSTIPATION [None]
  - CORONARY ARTERY DISEASE [None]
  - DIZZINESS [None]
  - HYPERTENSION [None]
  - MYOCARDIAL INFARCTION [None]
